APPROVED DRUG PRODUCT: OSENI
Active Ingredient: ALOGLIPTIN BENZOATE; PIOGLITAZONE HYDROCHLORIDE
Strength: EQ 12.5MG BASE;EQ 30MG BASE
Dosage Form/Route: TABLET;ORAL
Application: N022426 | Product #005
Applicant: TAKEDA PHARMACEUTICALS USA INC
Approved: Jan 25, 2013 | RLD: Yes | RS: No | Type: RX

PATENTS:
Patent 7807689 | Expires: Jun 27, 2028
Patent 8637079 | Expires: Jun 4, 2029